FAERS Safety Report 11108927 (Version 2)
Quarter: 2015Q3

REPORT INFORMATION
  Report Type: Spontaneous
  Country: DE (occurrence: DE)
  Receive Date: 20150513
  Receipt Date: 20150814
  Transmission Date: 20151125
  Serious: Yes (Death, Life-Threatening, Hospitalization)
  Sender: FDA-Public Use
  Company Number: DE-SUN PHARMACEUTICAL INDUSTRIES LTD-2015R1-96926

PATIENT
  Age: 24 Year
  Sex: Female
  Weight: 78 kg

DRUGS (1)
  1. CEFUROXIM [Suspect]
     Active Substance: CEFUROXIME
     Indication: ANTIBIOTIC PROPHYLAXIS
     Dosage: 0.5 G, QD
     Route: 041
     Dates: start: 20150331

REACTIONS (5)
  - Resuscitation [Fatal]
  - Cardiac arrest [Fatal]
  - Brain injury [Recovered/Resolved with Sequelae]
  - Anaphylactic reaction [Fatal]
  - Bronchospasm [Fatal]

NARRATIVE: CASE EVENT DATE: 20150331
